FAERS Safety Report 17448881 (Version 1)
Quarter: 2020Q1

REPORT INFORMATION
  Report Type: Spontaneous
  Country: US (occurrence: US)
  Receive Date: 20200224
  Receipt Date: 20200224
  Transmission Date: 20200409
  Serious: No
  Sender: FDA-Public Use
  Company Number: US-SCIEGEN PHARMACEUTICALS INC-2020SCISPO00048

PATIENT

DRUGS (1)
  1. PREGABALIN CAPSULES [Suspect]
     Active Substance: PREGABALIN

REACTIONS (2)
  - Product substitution issue [Unknown]
  - Pain [Unknown]
